FAERS Safety Report 8522116-0 (Version None)
Quarter: 2012Q3

REPORT INFORMATION
  Report Type: 
  Country: None (occurrence: None)
  Receive Date: 20120719
  Receipt Date: 20120713
  Transmission Date: 20120928
  Serious: Yes (Hospitalization, Other)
  Sender: FDA-Public Use
  Company Number: US-ABBOTT-11P-163-0863614-00

PATIENT
  Age: 24 Year
  Sex: Female

DRUGS (11)
  1. HUMIRA [Suspect]
     Indication: CROHN'S DISEASE
     Dates: start: 20110723
  2. HUMIRA [Suspect]
  3. PREDNISONE [Concomitant]
     Dosage: TAPER DOWN 2.5 MG EVERY TWO WEEKS
  4. NORGESTIMATE AND ETHINYL ESTRADIOL [Concomitant]
     Indication: ORAL CONTRACEPTION
  5. VITAMIN B-12 [Concomitant]
     Indication: PRODUCT USED FOR UNKNOWN INDICATION
  6. IRON [Suspect]
     Indication: PRODUCT USED FOR UNKNOWN INDICATION
  7. IRON [Concomitant]
     Indication: MINERAL SUPPLEMENTATION
  8. IRON [Suspect]
  9. PREDNISONE [Concomitant]
     Dosage: 15MG DAILY-FLUCTUATING UP AND DOWN
  10. B12 NASAL SPRAY [Concomitant]
     Indication: PRODUCT USED FOR UNKNOWN INDICATION
  11. PREDNISONE [Concomitant]
     Indication: PRODUCT USED FOR UNKNOWN INDICATION
     Dates: start: 20110901

REACTIONS (11)
  - ABNORMAL FAECES [None]
  - INTESTINAL RESECTION [None]
  - INTESTINAL OBSTRUCTION [None]
  - MUSCLE SPASMS [None]
  - POSTOPERATIVE WOUND INFECTION [None]
  - INFLAMMATION [None]
  - INJECTION SITE WARMTH [None]
  - ABDOMINAL ABSCESS [None]
  - INJECTION SITE INDURATION [None]
  - DRUG EFFECT DECREASED [None]
  - INJECTION SITE ERYTHEMA [None]
